FAERS Safety Report 10156530 (Version 1)
Quarter: 2014Q2

REPORT INFORMATION
  Report Type: Spontaneous
  Country: US (occurrence: None)
  Receive Date: 20140505
  Receipt Date: 20140505
  Transmission Date: 20141212
  Serious: Yes (Hospitalization)
  Sender: FDA-Public Use
  Company Number: 2014P1003554

PATIENT
  Age: 53 Year
  Sex: Male

DRUGS (2)
  1. DOXYCYCLINE [Suspect]
     Indication: LYME DISEASE
  2. NAPROXEN [Suspect]

REACTIONS (5)
  - Rectal haemorrhage [None]
  - Tachycardia [None]
  - Hypotension [None]
  - Abdominal tenderness [None]
  - Gastric ulcer haemorrhage [None]
